FAERS Safety Report 5884990-6 (Version None)
Quarter: 2008Q3

REPORT INFORMATION
  Report Type: 
  Country: None (occurrence: None)
  Receive Date: 20080912
  Receipt Date: 20080829
  Transmission Date: 20090109
  Serious: Yes (Hospitalization)
  Sender: FDA-Public Use
  Company Number: LUP-0274

PATIENT
  Age: 57 Year
  Sex: Male
  Weight: 85.7298 kg

DRUGS (3)
  1. LISINOPRIL [Suspect]
     Indication: HYPERTENSION
     Dosage: SINGLE DOSE 10 MG QD PO
     Route: 048
     Dates: start: 20080406, end: 20080406
  2. IMIQUIMOD [Concomitant]
  3. MULTIVITAMIN [Concomitant]

REACTIONS (8)
  - ANGIOEDEMA [None]
  - DIARRHOEA [None]
  - HYPERSENSITIVITY [None]
  - HYPOTENSION [None]
  - HYPOXIA [None]
  - NAUSEA [None]
  - RENAL FAILURE [None]
  - VOMITING [None]
